FAERS Safety Report 4973859-7 (Version None)
Quarter: 2006Q2

REPORT INFORMATION
  Report Type: 
  Country: None (occurrence: None)
  Receive Date: 20060415
  Receipt Date: 20010710
  Transmission Date: 20061013
  Serious: Yes (Death, Life-Threatening, Hospitalization)
  Sender: FDA-Public Use
  Company Number: NL-ABBOTT-01P-114-0175943-00

PATIENT
  Sex: Male
  Weight: 57.5 kg

DRUGS (8)
  1. HUMIRA [Suspect]
     Indication: RHEUMATOID ARTHRITIS
     Route: 058
     Dates: start: 20001127, end: 20010528
  2. TAMSULOSIN HCL [Concomitant]
     Indication: PROSTATISM
     Route: 048
     Dates: start: 20010511, end: 20020227
  3. TEARS PLUS [Concomitant]
     Indication: DRY EYE
     Route: 047
     Dates: start: 20010208, end: 20020227
  4. FOLINIC ACID [Concomitant]
     Indication: ADENOCARCINOMA
     Dosage: 800 MG
     Route: 042
     Dates: start: 20011012, end: 20020112
  5. 5-FLUORURACIL [Concomitant]
     Indication: ADENOCARCINOMA
     Dosage: 960 MG
     Route: 042
     Dates: start: 20011012, end: 20020112
  6. DEPO-MEDROL [Concomitant]
     Indication: RHEUMATOID ARTHRITIS
     Dosage: 120 MG
     Route: 030
     Dates: start: 20011003, end: 20020227
  7. HEPARIN-FRACTION, CALCIUM SALT [Concomitant]
     Indication: DEEP VEIN THROMBOSIS
     Dosage: 1850 E
     Route: 058
     Dates: start: 20011001, end: 20020227
  8. OMEPRAZOLE [Concomitant]
     Indication: GASTRIC DISORDER
     Dates: start: 20010929, end: 20020227

REACTIONS (20)
  - ADENOCARCINOMA [None]
  - CACHEXIA [None]
  - CHOLELITHIASIS [None]
  - COLON CANCER [None]
  - CONDITION AGGRAVATED [None]
  - DEEP VEIN THROMBOSIS [None]
  - DUODENAL ULCER PERFORATION [None]
  - GASTRIC ULCER PERFORATION [None]
  - GASTROINTESTINAL STROMAL TUMOUR [None]
  - IMMOBILE [None]
  - INFERIOR VENA CAVAL OCCLUSION [None]
  - LYMPH NODE CANCER METASTATIC [None]
  - METASTASES TO LIVER [None]
  - METASTASES TO THE MEDIASTINUM [None]
  - METASTASIS [None]
  - OESOPHAGEAL SQUAMOUS CELL CARCINOMA [None]
  - RECTAL CANCER METASTATIC [None]
  - RHEUMATOID ARTHRITIS [None]
  - TONSIL CANCER [None]
  - VENA CAVA THROMBOSIS [None]
